FAERS Safety Report 8922174 (Version 1)
Quarter: 2012Q4

REPORT INFORMATION
  Report Type: 
  Country: GB (occurrence: GB)
  Receive Date: 20121123
  Receipt Date: 20121123
  Transmission Date: 20130627
  Serious: Yes (Hospitalization, Other)
  Sender: FDA-Public Use
  Company Number: GB-JNJFOC-20121110875

PATIENT
  Age: 66 Year
  Sex: Female
  Weight: 60 kg

DRUGS (3)
  1. SPORANOX [Suspect]
     Indication: BRONCHOPULMONARY ASPERGILLOSIS
     Route: 048
     Dates: start: 20120303, end: 20120524
  2. ATENOLOL [Concomitant]
     Indication: ARRHYTHMIA
     Route: 065
     Dates: start: 2000
  3. DICLOFENAC [Concomitant]
     Indication: PRODUCT USED FOR UNKNOWN INDICATION
     Route: 065

REACTIONS (8)
  - Aortic valve disease [Recovered/Resolved]
  - Arrhythmia [Recovered/Resolved]
  - Condition aggravated [Recovered/Resolved]
  - Blood pressure increased [Recovered/Resolved]
  - Arthralgia [Recovered/Resolved with Sequelae]
  - Mitral valve disease [Recovered/Resolved]
  - Oedema peripheral [Recovered/Resolved]
  - Tricuspid valve disease [Recovered/Resolved]
